FAERS Safety Report 15351054 (Version 1)
Quarter: 2018Q3

REPORT INFORMATION
  Report Type: Spontaneous
  Country: JP (occurrence: JP)
  Receive Date: 20180905
  Receipt Date: 20180905
  Transmission Date: 20181010
  Serious: Yes (Other)
  Sender: FDA-Public Use
  Company Number: JP-SUN PHARMACEUTICAL INDUSTRIES LTD-2018RR-183426

PATIENT
  Age: 70 Year
  Sex: Male
  Weight: 57 kg

DRUGS (4)
  1. PREDNISOLONE. [Suspect]
     Active Substance: PREDNISOLONE
     Indication: TOLOSA-HUNT SYNDROME
     Dosage: 60 MG, DAILY; TREATMENT RESUMED AT 10 MG/DAY
     Route: 048
  2. METHYLPREDNISOLONE. [Suspect]
     Active Substance: METHYLPREDNISOLONE
     Indication: TOLOSA-HUNT SYNDROME
     Dosage: 1000 MG, DAILY
     Route: 042
  3. TRAMADOL. [Suspect]
     Active Substance: TRAMADOL
     Indication: EYE PAIN
     Dosage: 25 MG
     Route: 065
  4. LOXOPROFEN [Suspect]
     Active Substance: LOXOPROFEN
     Indication: EYE PAIN
     Dosage: 60 MG
     Route: 065

REACTIONS (8)
  - Drug effect incomplete [Unknown]
  - Hiccups [Recovered/Resolved]
  - Speech disorder [Recovered/Resolved]
  - Decreased appetite [Recovered/Resolved]
  - Depressed level of consciousness [Recovered/Resolved]
  - Sleep disorder [Recovered/Resolved]
  - Drug ineffective [Unknown]
  - Delirium [Recovered/Resolved]
